FAERS Safety Report 6664289-0 (Version None)
Quarter: 2010Q2

REPORT INFORMATION
  Report Type: 
  Country: None (occurrence: None)
  Receive Date: 20100401
  Receipt Date: 20100322
  Transmission Date: 20101027
  Serious: No
  Sender: FDA-Public Use
  Company Number: GB-ELI_LILLY_AND_COMPANY-GB201003007274

PATIENT
  Sex: Male

DRUGS (3)
  1. ZYPREXA [Suspect]
  2. SODIUM VALPROATE [Concomitant]
     Dosage: 2 G, DAILY (1/D)
  3. SODIUM VALPROATE [Concomitant]
     Dosage: 1.5 G, DAILY (1/D)

REACTIONS (1)
  - NEUTROPENIA [None]
